FAERS Safety Report 19275597 (Version 7)
Quarter: 2022Q1

REPORT INFORMATION
  Report Type: Report from Study
  Country: CA (occurrence: CA)
  Receive Date: 20210519
  Receipt Date: 20220131
  Transmission Date: 20220423
  Serious: Yes (Other)
  Sender: FDA-Public Use
  Company Number: CA-GLAXOSMITHKLINE-CA2021AMR102009

PATIENT
  Age: 72 Year
  Sex: Male

DRUGS (5)
  1. MEPOLIZUMAB [Suspect]
     Active Substance: MEPOLIZUMAB
     Indication: Asthma
     Dosage: 100 MG, Z, EVERY 4 WEEKS
     Route: 058
     Dates: start: 20190522
  2. MEPOLIZUMAB [Suspect]
     Active Substance: MEPOLIZUMAB
     Dosage: 100 MG, Z, EVERY 4 WEEKS
     Route: 058
  3. MEPOLIZUMAB [Suspect]
     Active Substance: MEPOLIZUMAB
     Dosage: 100 MG, Z, EVERY 4 WEEKS
     Route: 058
  4. MEPOLIZUMAB [Suspect]
     Active Substance: MEPOLIZUMAB
     Dosage: 100 MG, Z, EVERY 4 WEEKS
     Route: 058
     Dates: start: 20190522
  5. COVID-19 VACCINE NOS [Suspect]
     Active Substance: COVID-19 VACCINE NOS
     Indication: Prophylaxis
     Dosage: UNK
     Dates: start: 202104

REACTIONS (27)
  - Renal cancer [Unknown]
  - Neoplasm malignant [Unknown]
  - Deafness [Unknown]
  - Dyspnoea [Recovered/Resolved]
  - Ill-defined disorder [Unknown]
  - Pain [Unknown]
  - Balance disorder [Unknown]
  - Dry skin [Not Recovered/Not Resolved]
  - Rash [Unknown]
  - Tooth disorder [Unknown]
  - Depression [Unknown]
  - Productive cough [Unknown]
  - Chronic obstructive pulmonary disease [Unknown]
  - Tinnitus [Unknown]
  - Shoulder operation [Unknown]
  - Hip surgery [Unknown]
  - Dizziness [Unknown]
  - Pruritus [Unknown]
  - Erythema [Unknown]
  - Tremor [Not Recovered/Not Resolved]
  - Amnesia [Unknown]
  - Anxiety [Unknown]
  - Nephrectomy [Unknown]
  - Chest discomfort [Unknown]
  - Respiratory rate increased [Unknown]
  - Product dose omission issue [Unknown]
  - Therapeutic product effect incomplete [Unknown]

NARRATIVE: CASE EVENT DATE: 20210401
